FAERS Safety Report 23103548 (Version 1)
Quarter: 2023Q4

REPORT INFORMATION
  Report Type: Spontaneous
  Country: US (occurrence: US)
  Receive Date: 20231025
  Receipt Date: 20231025
  Transmission Date: 20240109
  Serious: Yes (Life-Threatening, Hospitalization, Other)
  Sender: FDA-Public Use
  Company Number: US-DENTSPLY-2023SCDP000352

PATIENT
  Age: 61 Year
  Sex: Male
  Weight: 70 kg

DRUGS (2)
  1. LIDOCAINE [Suspect]
     Active Substance: LIDOCAINE
     Indication: Dialysis
     Dosage: 400 MILLIGRAM TOTAL (CUMULATIVE DOSE) 20CC OF 2% LIDOCAINE (100MG/5CC)
     Route: 058
  2. LIDOCAINE [Suspect]
     Active Substance: LIDOCAINE
     Indication: Analgesic therapy

REACTIONS (10)
  - Blood prolactin increased [Recovered/Resolved]
  - Urinary incontinence [Recovered/Resolved]
  - Mental status changes [Recovered/Resolved]
  - Nystagmus [Recovered/Resolved]
  - Miosis [Recovered/Resolved]
  - Consciousness fluctuating [Recovered/Resolved]
  - Cardiovascular insufficiency [Recovered/Resolved]
  - Hypotension [Recovered/Resolved]
  - Local anaesthetic systemic toxicity [Recovered/Resolved]
  - Overdose [Recovered/Resolved]
